FAERS Safety Report 8359028-1 (Version None)
Quarter: 2012Q2

REPORT INFORMATION
  Report Type: 
  Country: None (occurrence: None)
  Receive Date: 20120515
  Receipt Date: 20120507
  Transmission Date: 20120825
  Serious: No
  Sender: FDA-Public Use
  Company Number: US-BIOGENIDEC-2012BI016324

PATIENT
  Age: 32 Year
  Sex: Female

DRUGS (4)
  1. TYSABRI [Suspect]
     Route: 042
     Dates: start: 20090220, end: 20100111
  2. TYSABRI [Suspect]
     Route: 042
     Dates: start: 20100308, end: 20110712
  3. TYSABRI [Suspect]
     Indication: MULTIPLE SCLEROSIS
     Route: 042
     Dates: start: 20070125, end: 20080610
  4. TYSABRI [Suspect]
     Route: 042
     Dates: start: 20120418

REACTIONS (5)
  - APHASIA [None]
  - BALANCE DISORDER [None]
  - ACTIVITIES OF DAILY LIVING IMPAIRED [None]
  - MULTIPLE SCLEROSIS RELAPSE [None]
  - BLINDNESS [None]
